FAERS Safety Report 8248950-2 (Version None)
Quarter: 2012Q2

REPORT INFORMATION
  Report Type: 
  Country: None (occurrence: None)
  Receive Date: 20120402
  Receipt Date: 20120329
  Transmission Date: 20120825
  Serious: Yes (Hospitalization, Other)
  Sender: FDA-Public Use
  Company Number: AU-AMGEN-AUSSP2012016375

PATIENT
  Sex: Female

DRUGS (1)
  1. NPLATE [Suspect]
     Indication: PRODUCT USED FOR UNKNOWN INDICATION
     Dosage: 4 MUG/KG, UNK

REACTIONS (5)
  - INTRA-ABDOMINAL HAEMORRHAGE [None]
  - THROMBOCYTOPENIA [None]
  - ACCIDENTAL OVERDOSE [None]
  - FALL [None]
  - CONTUSION [None]
